FAERS Safety Report 18630476 (Version 1)
Quarter: 2020Q4

REPORT INFORMATION
  Report Type: Spontaneous
  Country: FR (occurrence: FR)
  Receive Date: 20201218
  Receipt Date: 20201218
  Transmission Date: 20210114
  Serious: Yes (Disabling)
  Sender: FDA-Public Use
  Company Number: FR-AMGEN-FRASP2020204985

PATIENT
  Age: 47 Year
  Sex: Male
  Weight: 85.8 kg

DRUGS (5)
  1. ACIDE FOLIQUE MYLAN [Suspect]
     Active Substance: FOLIC ACID
     Indication: BLOOD DISORDER PROPHYLAXIS
     Dosage: 4 DOSAGE FORM, QWK
     Route: 048
     Dates: start: 1998
  2. DOLIPRANE [Concomitant]
     Active Substance: ACETAMINOPHEN
     Dosage: UNK
  3. ENBREL [Suspect]
     Active Substance: ETANERCEPT
     Indication: POLYARTHRITIS
     Dosage: 50 MILLIGRAM, QWK
     Route: 058
     Dates: start: 200904, end: 202007
  4. CELECOXIB. [Concomitant]
     Active Substance: CELECOXIB
     Dosage: UNK
  5. METOJECT [Suspect]
     Active Substance: METHOTREXATE SODIUM
     Indication: POLYARTHRITIS
     Dosage: 20 MILLIGRAM, QWK
     Route: 058
     Dates: start: 1998

REACTIONS (2)
  - Venous thrombosis [Recovered/Resolved with Sequelae]
  - Arterial thrombosis [Recovered/Resolved with Sequelae]

NARRATIVE: CASE EVENT DATE: 201404
